FAERS Safety Report 18498926 (Version 1)
Quarter: 2020Q4

REPORT INFORMATION
  Report Type: Spontaneous
  Country: JP (occurrence: JP)
  Receive Date: 20201113
  Receipt Date: 20201113
  Transmission Date: 20210114
  Serious: Yes (Other)
  Sender: FDA-Public Use
  Company Number: JP-TERSERA THERAPEUTICS LLC-2020TRS003715

PATIENT

DRUGS (7)
  1. BICALUTAMIDE. [Suspect]
     Active Substance: BICALUTAMIDE
     Indication: PROSTATE CANCER
     Dosage: 80 MILLIGRAM, QD
     Route: 048
     Dates: start: 201108
  2. FLUTAMIDE. [Suspect]
     Active Substance: FLUTAMIDE
     Indication: PROSTATE CANCER
     Dosage: UNK
     Route: 065
  3. WARFARIN POTASSIUM [Concomitant]
     Active Substance: WARFARIN POTASSIUM
     Indication: ATRIAL FIBRILLATION
     Dosage: UNK
     Route: 065
  4. GOSERELIN [Suspect]
     Active Substance: GOSERELIN
     Dosage: 10.8 MG
     Route: 058
  5. GOSERELIN [Suspect]
     Active Substance: GOSERELIN
     Indication: PROSTATE CANCER
     Dosage: 3.6 MG
     Route: 058
     Dates: start: 201309
  6. ATENOLOL. [Concomitant]
     Active Substance: ATENOLOL
     Indication: HYPERTENSION
     Dosage: UNK
     Route: 065
  7. LEUPRORELIN ACETATE [Suspect]
     Active Substance: LEUPROLIDE ACETATE
     Indication: PROSTATE CANCER
     Dosage: 3.75 MG/MONTH
     Route: 065

REACTIONS (2)
  - Drug ineffective [Unknown]
  - Hepatic function abnormal [Unknown]
